FAERS Safety Report 19910734 (Version 2)
Quarter: 2022Q1

REPORT INFORMATION
  Report Type: Report from Study
  Country: US (occurrence: US)
  Receive Date: 20211004
  Receipt Date: 20220102
  Transmission Date: 20220423
  Serious: No
  Sender: FDA-Public Use
  Company Number: US-BIOVITRUM-2021US8364

PATIENT
  Age: 15 Year
  Sex: Female

DRUGS (4)
  1. KINERET [Suspect]
     Active Substance: ANAKINRA
     Indication: Sinusitis
     Route: 058
     Dates: start: 20210310
  2. KINERET [Suspect]
     Active Substance: ANAKINRA
     Indication: Nasal disorder
     Route: 058
     Dates: start: 202103
  3. KINERET [Suspect]
     Active Substance: ANAKINRA
     Dosage: 300MG EVERY MORNING,?200MG EVERY EVENING,
     Route: 058
     Dates: start: 20210223
  4. COVID-19 VACCINE NOS [Suspect]
     Active Substance: COVID-19 VACCINE NOS

REACTIONS (10)
  - Sinusitis [Unknown]
  - Condition aggravated [Unknown]
  - C-reactive protein increased [Unknown]
  - Unevaluable event [Unknown]
  - Inflammation [Unknown]
  - Condition aggravated [Unknown]
  - Abdominal pain upper [Unknown]
  - Headache [Unknown]
  - Rash [Unknown]
  - Off label use [Not Recovered/Not Resolved]

NARRATIVE: CASE EVENT DATE: 20210223
